FAERS Safety Report 9225610 (Version 4)
Quarter: 2013Q3

REPORT INFORMATION
  Report Type: Spontaneous
  Country: BR (occurrence: BR)
  Receive Date: 20130411
  Receipt Date: 20130705
  Transmission Date: 20140515
  Serious: Yes (Hospitalization, Other)
  Sender: FDA-Public Use
  Company Number: BR-ASTRAZENECA-2013SE21441

PATIENT
  Age: 71 Year
  Sex: Female
  Weight: 65 kg

DRUGS (11)
  1. TENORETIC [Suspect]
     Indication: HYPERTENSION
     Dosage: 50/12.5 MG DAILY
     Route: 048
  2. CRESTOR [Suspect]
     Indication: BLOOD CHOLESTEROL INCREASED
     Route: 048
     Dates: start: 2011, end: 2012
  3. CRESTOR [Suspect]
     Indication: BLOOD TRIGLYCERIDES INCREASED
     Route: 048
     Dates: start: 2011, end: 2012
  4. CRESTOR [Suspect]
     Indication: BLOOD CHOLESTEROL INCREASED
     Route: 048
     Dates: start: 2012, end: 201306
  5. CRESTOR [Suspect]
     Indication: BLOOD TRIGLYCERIDES INCREASED
     Route: 048
     Dates: start: 2012, end: 201306
  6. CRESTOR [Suspect]
     Indication: BLOOD CHOLESTEROL INCREASED
     Route: 048
     Dates: start: 201306
  7. CRESTOR [Suspect]
     Indication: BLOOD TRIGLYCERIDES INCREASED
     Route: 048
     Dates: start: 201306
  8. NOLVADEX D [Concomitant]
     Indication: BREAST CANCER
     Route: 048
     Dates: start: 20130331
  9. GLIFAGE [Concomitant]
     Indication: DIABETES MELLITUS
     Dosage: DAILY
  10. AZOPT EYE DROP [Concomitant]
     Indication: INTRAOCULAR PRESSURE TEST ABNORMAL
  11. GLUCOSAMINE [Concomitant]
     Indication: OSTEOARTHRITIS

REACTIONS (4)
  - Breast cancer [Unknown]
  - Blood cholesterol increased [Recovered/Resolved]
  - Blood triglycerides increased [Not Recovered/Not Resolved]
  - Off label use [Recovered/Resolved]
